FAERS Safety Report 6699740-3 (Version None)
Quarter: 2010Q2

REPORT INFORMATION
  Report Type: 
  Country: None (occurrence: None)
  Receive Date: 20100427
  Receipt Date: 20100427
  Transmission Date: 20101027
  Serious: No
  Sender: FDA-Public Use
  Company Number: None

PATIENT
  Age: 10 Year
  Sex: Male
  Weight: 63.5036 kg

DRUGS (1)
  1. ABILIFY [Suspect]

REACTIONS (1)
  - UNEVALUABLE EVENT [None]
